FAERS Safety Report 18928887 (Version 3)
Quarter: 2021Q3

REPORT INFORMATION
  Report Type: Spontaneous
  Country: US (occurrence: US)
  Receive Date: 20210223
  Receipt Date: 20210707
  Transmission Date: 20211014
  Serious: Yes (Congenital Anomaly, Other)
  Sender: FDA-Public Use
  Company Number: US-PURDUE-USA-2020-0213447

PATIENT
  Sex: Female

DRUGS (3)
  1. MORPHINE SULFATE (SIMILAR TO NDA 19?516) [Suspect]
     Active Substance: MORPHINE SULFATE
     Indication: PAIN
     Dosage: 1 TABLET, Q6H
     Route: 048
     Dates: end: 201206
  2. MORPHINE SULFATE EXTENDED?RELEASE TABLETS (RHODES 74?769, 74?862) [Suspect]
     Active Substance: MORPHINE SULFATE
     Indication: PAIN
     Dosage: 1 TABLET, Q8H
     Route: 048
     Dates: end: 201206
  3. OXYCONTIN [Suspect]
     Active Substance: OXYCODONE HYDROCHLORIDE
     Indication: PAIN
     Dosage: 20 MG, UNK
     Route: 048
     Dates: start: 2000, end: 201206

REACTIONS (11)
  - Dyspepsia [Unknown]
  - Pancreatic mass [Unknown]
  - Drug dependence [Unknown]
  - Mental disorder [Unknown]
  - Abdominal pain upper [Unknown]
  - Emotional distress [Unknown]
  - Aneurysm [Unknown]
  - Mental impairment [Unknown]
  - Muscle spasms [Unknown]
  - Pain [Unknown]
  - Nausea [Unknown]

NARRATIVE: CASE EVENT DATE: 2000
